FAERS Safety Report 6564242-1 (Version None)
Quarter: 2010Q1

REPORT INFORMATION
  Report Type: 
  Country: None (occurrence: None)
  Receive Date: 20100201
  Receipt Date: 20100126
  Transmission Date: 20100710
  Serious: Yes (Hospitalization)
  Sender: FDA-Public Use
  Company Number: US-BIOGENIDEC-2009BI041025

PATIENT
  Age: 50 Year
  Sex: Female

DRUGS (13)
  1. AVONEX [Suspect]
     Indication: MULTIPLE SCLEROSIS
     Route: 030
     Dates: start: 20090731
  2. ZOLOFT [Concomitant]
     Indication: DEPRESSION
     Route: 048
  3. ZANAFLEX [Concomitant]
     Route: 048
  4. PROTONIX [Concomitant]
     Indication: PROPHYLAXIS
     Route: 048
  5. COLACE [Concomitant]
     Route: 048
  6. DULCOLAX [Concomitant]
     Route: 054
  7. MAALOX [Concomitant]
     Route: 048
  8. SENOKOT [Concomitant]
     Route: 048
  9. TYLENOL-500 [Concomitant]
     Route: 048
  10. HEPARIN [Concomitant]
     Indication: THROMBOSIS PROPHYLAXIS
     Route: 058
  11. THIAMINE [Concomitant]
     Route: 048
  12. FOLIC ACID [Concomitant]
     Route: 048
  13. LACTULOSE [Concomitant]
     Route: 048

REACTIONS (17)
  - AMNESIA [None]
  - ANAEMIA [None]
  - BACTERIAL INFECTION [None]
  - COGNITIVE DISORDER [None]
  - CONCUSSION [None]
  - CONFUSIONAL STATE [None]
  - DECUBITUS ULCER [None]
  - DEPRESSION [None]
  - EXCORIATION [None]
  - FALL [None]
  - FATIGUE [None]
  - HYPOTENSION [None]
  - NEUROGENIC BLADDER [None]
  - PARAPLEGIA [None]
  - SEPTIC SHOCK [None]
  - STAPHYLOCOCCAL BACTERAEMIA [None]
  - STREPTOCOCCAL BACTERAEMIA [None]
